FAERS Safety Report 7821860-8 (Version None)
Quarter: 2011Q4

REPORT INFORMATION
  Report Type: 
  Country: None (occurrence: None)
  Receive Date: 20111018
  Receipt Date: 20101110
  Transmission Date: 20120403
  Serious: No
  Sender: FDA-Public Use
  Company Number: US-ASTRAZENECA-2010SE53427

PATIENT
  Age: 45 Year
  Sex: Female
  Weight: 99.8 kg

DRUGS (1)
  1. SYMBICORT [Suspect]
     Indication: ASTHMA
     Dosage: 2 PUFFS TWICE
     Route: 055
     Dates: start: 20100801

REACTIONS (3)
  - SINUSITIS [None]
  - BRONCHITIS [None]
  - INCORRECT DOSE ADMINISTERED [None]
